FAERS Safety Report 10482314 (Version 5)
Quarter: 2014Q4

REPORT INFORMATION
  Report Type: Report from Study
  Country: JP (occurrence: JP)
  Receive Date: 20140929
  Receipt Date: 20141215
  Transmission Date: 20150528
  Serious: Yes (Death)
  Sender: FDA-Public Use
  Company Number: JP-EISAI MEDICAL RESEARCH-EC-2014-000427

PATIENT
  Age: 26 Year
  Sex: Male
  Weight: 92 kg

DRUGS (6)
  1. HYDANTOL [Suspect]
     Active Substance: PHENYTOIN SODIUM
     Indication: EPILEPSY
     Route: 048
     Dates: start: 20130612, end: 20140926
  2. PERAMPANEL [Suspect]
     Active Substance: PERAMPANEL
     Indication: PARTIAL SEIZURES
     Route: 048
     Dates: start: 20140115, end: 20140528
  3. PERAMPANEL [Suspect]
     Active Substance: PERAMPANEL
     Dosage: CONVERSION
     Route: 048
     Dates: start: 20140528, end: 20140805
  4. MENDON [Suspect]
     Active Substance: CLORAZEPATE DIPOTASSIUM
     Indication: EPILEPSY
     Route: 048
     Dates: start: 20130829, end: 20140926
  5. LAMICTAL [Suspect]
     Active Substance: LAMOTRIGINE
     Indication: EPILEPSY
     Route: 048
     Dates: start: 20130724, end: 20140926
  6. PERAMPANEL [Suspect]
     Active Substance: PERAMPANEL
     Route: 048
     Dates: start: 20140806, end: 20140925

REACTIONS (3)
  - Cardiac arrest [None]
  - Sudden unexplained death in epilepsy [Fatal]
  - Generalised tonic-clonic seizure [None]

NARRATIVE: CASE EVENT DATE: 20140926
